FAERS Safety Report 12784621 (Version 1)
Quarter: 2016Q3

REPORT INFORMATION
  Report Type: Report from Study
  Country: DE (occurrence: DE)
  Receive Date: 20160927
  Receipt Date: 20160927
  Transmission Date: 20161109
  Serious: Yes (Hospitalization)
  Sender: FDA-Public Use
  Company Number: PHHO2016DE005516

PATIENT
  Age: 54 Year
  Sex: Male
  Weight: 93.5 kg

DRUGS (5)
  1. MARCUMAR [Concomitant]
     Active Substance: PHENPROCOUMON
     Indication: SHUNT THROMBOSIS
     Dosage: UNK
     Route: 065
     Dates: start: 20151028, end: 20160301
  2. PREDNISONE. [Concomitant]
     Active Substance: PREDNISONE
     Indication: RENAL TRANSPLANT
     Dosage: 5 MG, UNK
     Route: 065
     Dates: start: 20150728
  3. TACROLIMUS. [Suspect]
     Active Substance: TACROLIMUS
     Indication: RENAL TRANSPLANT
     Dosage: 4.5 MG, (2.5-0-2)
     Route: 048
     Dates: start: 20150728
  4. CLEXANE [Concomitant]
     Active Substance: ENOXAPARIN SODIUM
     Indication: SHUNT THROMBOSIS
     Dosage: UNK
     Route: 065
     Dates: start: 20151001, end: 20151027
  5. CERTICAN [Suspect]
     Active Substance: EVEROLIMUS
     Indication: RENAL TRANSPLANT
     Dosage: 4.5 MG, QD (2.5-0-2)
     Route: 048
     Dates: start: 20150728

REACTIONS (1)
  - Venous stenosis [Recovered/Resolved]

NARRATIVE: CASE EVENT DATE: 20160318
